FAERS Safety Report 20402388 (Version 4)
Quarter: 2022Q1

REPORT INFORMATION
  Report Type: Report from Study
  Country: US (occurrence: US)
  Receive Date: 20220131
  Receipt Date: 20220327
  Transmission Date: 20220423
  Serious: Yes (Hospitalization, Other)
  Sender: FDA-Public Use
  Company Number: US-ABBVIE-21K-163-4197402-00

PATIENT
  Sex: Female
  Weight: 70.370 kg

DRUGS (3)
  1. HUMIRA [Suspect]
     Active Substance: ADALIMUMAB
     Indication: Rheumatoid arthritis
     Route: 058
     Dates: end: 2015
  2. HUMIRA [Suspect]
     Active Substance: ADALIMUMAB
     Route: 058
     Dates: start: 2016, end: 202112
  3. MODERNA COVID-19 VACCINE [Concomitant]
     Active Substance: ELASOMERAN
     Indication: COVID-19 immunisation
     Route: 030

REACTIONS (11)
  - Squamous cell carcinoma of lung [Not Recovered/Not Resolved]
  - Nasal cavity cancer [Recovered/Resolved]
  - Febrile neutropenia [Recovered/Resolved]
  - Neoplasm malignant [Unknown]
  - Adenoid cystic carcinoma [Recovered/Resolved]
  - Pyrexia [Recovered/Resolved]
  - Lung neoplasm malignant [Not Recovered/Not Resolved]
  - Incorrect dose administered [Unknown]
  - Device issue [Unknown]
  - Gait disturbance [Recovered/Resolved]
  - Arthralgia [Unknown]

NARRATIVE: CASE EVENT DATE: 20070101
